FAERS Safety Report 22171516 (Version 1)
Quarter: 2023Q2

REPORT INFORMATION
  Report Type: Spontaneous
  Country: US (occurrence: None)
  Receive Date: 20230403
  Receipt Date: 20230403
  Transmission Date: 20230722
  Serious: Yes (Hospitalization)
  Sender: FDA-Public Use
  Company Number: None

PATIENT
  Age: 43 Year
  Sex: Male

DRUGS (2)
  1. SILDENAFIL CITRATE [Suspect]
     Active Substance: SILDENAFIL CITRATE
     Indication: Pulmonary arterial hypertension
     Dosage: 20MG TID ORAL?
     Route: 048
     Dates: start: 20220708
  2. VELETRI [Suspect]
     Active Substance: EPOPROSTENOL

REACTIONS (2)
  - SARS-CoV-2 antibody test positive [None]
  - Hypoxia [None]

NARRATIVE: CASE EVENT DATE: 20230402
